FAERS Safety Report 4900850-9 (Version None)
Quarter: 2006Q1

REPORT INFORMATION
  Report Type: 
  Country: None (occurrence: None)
  Receive Date: 20060201
  Receipt Date: 20060117
  Transmission Date: 20060701
  Serious: Yes (Hospitalization)
  Sender: FDA-Public Use
  Company Number: MAG-2005-0000403

PATIENT
  Age: 53 Year
  Sex: Male

DRUGS (4)
  1. THEOPHYLLINE [Suspect]
     Indication: ASTHMA
     Dosage: 400 MG, DAILY, ORAL
     Route: 048
     Dates: start: 20050802, end: 20050914
  2. SALMETEROL XINAFOATE(SALMETEROL XINAFOATE) [Suspect]
     Indication: ASTHMA
     Dosage: 100 MCG, DAILY, INHALATION
     Route: 055
     Dates: start: 20050802, end: 20050914
  3. TIOTROPIUM BROMIDE() [Suspect]
     Indication: ASTHMA
     Dosage: 18 MCG, DAILY, INHALATION
     Route: 055
     Dates: start: 20050802, end: 20050914
  4. FLUTICASONE PROPIONATE [Suspect]
     Indication: ASTHMA
     Dosage: 800 MCG, DAILY, INHALATION
     Route: 055
     Dates: start: 20050802, end: 20050914

REACTIONS (1)
  - EOSINOPHILIC PNEUMONIA [None]
